FAERS Safety Report 8672681 (Version 2)
Quarter: 2013Q2

REPORT INFORMATION
  Report Type: Spontaneous
  Country: US (occurrence: US)
  Receive Date: 20120719
  Receipt Date: 20130421
  Transmission Date: 20140414
  Serious: Yes (Other)
  Sender: FDA-Public Use
  Company Number: US-TEVA-348536USA

PATIENT
  Sex: Female

DRUGS (1)
  1. DROSPIRENONE W/ETHINYLESTRADIOL [Suspect]

REACTIONS (3)
  - Withdrawal syndrome [Unknown]
  - Feeling abnormal [Unknown]
  - Pain [Unknown]
